FAERS Safety Report 13905448 (Version 4)
Quarter: 2020Q2

REPORT INFORMATION
  Report Type: Spontaneous
  Country: DE (occurrence: DE)
  Receive Date: 20170825
  Receipt Date: 20200529
  Transmission Date: 20200713
  Serious: Yes (Congenital Anomaly)
  Sender: FDA-Public Use
  Company Number: GXKR2017DE004143

PATIENT
  Age: 1 Day
  Sex: Male
  Weight: 3.97 kg

DRUGS (11)
  1. FOLIC ACID. [Concomitant]
     Active Substance: FOLIC ACID
     Indication: FOETAL EXPOSURE DURING PREGNANCY
     Dosage: UNK (MATERNAL DOSE: 0.8 (MG/D, (BIS 0.4))
     Route: 064
  2. VITAMIN D [Concomitant]
     Active Substance: VITAMIN D NOS
     Indication: FOETAL EXPOSURE DURING PREGNANCY
     Dosage: UNK (MATERNAL DOSE: 1000 IU)
     Route: 064
  3. WICK INHALIERSTIFT N [Concomitant]
     Indication: FOETAL EXPOSURE DURING PREGNANCY
     Dosage: UNK
     Route: 064
  4. LEVETIRACETAM. [Suspect]
     Active Substance: LEVETIRACETAM
     Indication: FOETAL EXPOSURE DURING PREGNANCY
     Dosage: UNK (MATERNAL DOSE: 1000MG, (500MG), BID)
     Route: 064
  5. INIMUR MYKO [Concomitant]
     Indication: FOETAL EXPOSURE DURING PREGNANCY
     Dosage: UNK
     Route: 064
  6. BEPANTHEN [Concomitant]
     Indication: FOETAL EXPOSURE DURING PREGNANCY
     Dosage: UNK (MATERNAL DOSE)
     Route: 064
  7. SERTRALINE [Suspect]
     Active Substance: SERTRALINE HYDROCHLORIDE
     Indication: FOETAL EXPOSURE DURING PREGNANCY
     Dosage: UNK (MATERNAL DOSE: 50MG, QD)
     Route: 064
  8. OXYTOCIN. [Concomitant]
     Active Substance: OXYTOCIN
     Indication: FOETAL EXPOSURE DURING PREGNANCY
     Dosage: UNK
     Route: 064
  9. BALDRIAN-DISPERT [Concomitant]
     Active Substance: VALERIAN
     Indication: FOETAL EXPOSURE DURING PREGNANCY
     Dosage: UNK (MATERNAL DOSE: 45MG, QD)
     Route: 064
  10. NYSTATIN. [Concomitant]
     Active Substance: NYSTATIN
     Indication: FOETAL EXPOSURE DURING PREGNANCY
     Dosage: UNK (MATERNAL DOSE)
     Route: 064
  11. EFEROX [Concomitant]
     Active Substance: LEVOTHYROXINE SODIUM
     Indication: FOETAL EXPOSURE DURING PREGNANCY
     Dosage: UNK (MATERNAL DOSE: 112UG QD)
     Route: 064

REACTIONS (2)
  - Foetal exposure during pregnancy [Unknown]
  - Cerebral haemorrhage neonatal [Unknown]

NARRATIVE: CASE EVENT DATE: 201604
